FAERS Safety Report 10440195 (Version 1)
Quarter: 2014Q3

REPORT INFORMATION
  Report Type: Spontaneous
  Country: US (occurrence: US)
  Receive Date: 20140908
  Receipt Date: 20140908
  Transmission Date: 20150326
  Serious: No
  Sender: FDA-Public Use
  Company Number: US-BRISTOL-MYERS SQUIBB COMPANY-20097788

PATIENT
  Sex: Female
  Weight: 83.44 kg

DRUGS (3)
  1. IRON [Concomitant]
     Active Substance: IRON
  2. VITAMIN [Concomitant]
     Active Substance: VITAMINS
  3. ABILIFY [Suspect]
     Active Substance: ARIPIPRAZOLE

REACTIONS (3)
  - Memory impairment [Unknown]
  - Twin pregnancy [Unknown]
  - Toothache [Unknown]
